FAERS Safety Report 5546106-5 (Version None)
Quarter: 2007Q4

REPORT INFORMATION
  Report Type: 
  Country: None (occurrence: None)
  Receive Date: 20071211
  Receipt Date: 20071016
  Transmission Date: 20080405
  Serious: No
  Sender: FDA-Public Use
  Company Number: US-BRISTOL-MYERS SQUIBB COMPANY-13944491

PATIENT
  Age: 79 Year
  Sex: Female
  Weight: 54 kg

DRUGS (11)
  1. EMSAM [Suspect]
     Indication: MAJOR DEPRESSION
     Route: 062
  2. LIPITOR [Concomitant]
  3. COZAAR [Concomitant]
  4. CARDIZEM [Concomitant]
  5. RISTORIL [Concomitant]
  6. NEXIUM [Concomitant]
  7. ATIVAN [Concomitant]
  8. GINKO BILOBA+GUARANA+GOTU KOLA+SPIRULINA+VITAMINS [Concomitant]
  9. FISH OIL [Concomitant]
  10. VITAMIN B COMPLEX CAP [Concomitant]
  11. VITAMIN D [Concomitant]

REACTIONS (1)
  - ANGER [None]
